FAERS Safety Report 7488140-4 (Version None)
Quarter: 2011Q2

REPORT INFORMATION
  Report Type: 
  Country: None (occurrence: None)
  Receive Date: 20110518
  Receipt Date: 20110428
  Transmission Date: 20111010
  Serious: Yes (Death)
  Sender: FDA-Public Use
  Company Number: GB-PFIZER INC-2011099470

PATIENT
  Age: 76 Year

DRUGS (16)
  1. HUMALOG [Concomitant]
     Dosage: 26 UNIT BEFORE BREAKFAST, 24 UNITS BEFORE TEA
  2. HYDROCORTISONE [Concomitant]
     Dosage: 5 MG, DAILY
  3. DILTIAZEM [Concomitant]
     Dosage: 180 MG, DAILY
  4. TIOTROPIUM [Concomitant]
     Route: 055
  5. CANDESARTAN [Concomitant]
     Dosage: 4 MG, DAILY
  6. RISEDRONATE [Concomitant]
     Dosage: 5 MG, DAILY
  7. HYDROCORTISONE [Concomitant]
     Dosage: 10 MG, 2X/DAY
  8. ALLOPURINOL [Concomitant]
     Dosage: 200 MG, DAILY
  9. SOMATROPIN RDNA [Suspect]
     Indication: HYPOPITUITARISM
  10. AMIODARONE [Concomitant]
     Dosage: 200 MG, DAILY
  11. THEOPHYLLINE [Concomitant]
     Dosage: 225 MG, 2X/DAY
  12. COMBIVENT [Concomitant]
     Route: 055
  13. ATORVASTATIN [Concomitant]
     Dosage: 10 MG, DAILY
  14. THYROXINE [Concomitant]
     Dosage: 125 UG, DAILY
  15. FUROSEMIDE [Concomitant]
     Dosage: 40 MG, DAILY
  16. SYMBICORT [Concomitant]
     Route: 055

REACTIONS (1)
  - DEATH [None]
